FAERS Safety Report 9185618 (Version 2)
Quarter: 2013Q3

REPORT INFORMATION
  Report Type: Spontaneous
  Country: US (occurrence: None)
  Receive Date: 20120628
  Receipt Date: 20130724
  Transmission Date: 20140515
  Serious: Yes (Other)
  Sender: FDA-Public Use
  Company Number: PHHY2011US49043

PATIENT
  Age: 79 Year
  Sex: Female

DRUGS (9)
  1. RECLAST [Suspect]
     Indication: OSTEOPOROSIS
     Route: 042
     Dates: start: 20110602
  2. LISINOPRIL (LISINOPRIL) [Concomitant]
  3. EYE DROPS (TETRYZOLINE HYDROCHLORIDE) [Concomitant]
  4. TRIAMTERENE (TRIAMTERENE) [Concomitant]
  5. SIMVASTATIN (SIMVASTATIN) [Concomitant]
  6. ASPIRIN (ACETYLSALICYLIC ACID) [Concomitant]
  7. TIMOLOL (TIMOLOL) [Concomitant]
  8. ANTIHYPERTENSIVES (NO INGREDIENTS/SUBSTANCES) [Concomitant]
  9. TIMOPTIC (TIMOLOL MALEATE) [Concomitant]

REACTIONS (9)
  - Iritis [None]
  - Eyelid pain [None]
  - Conjunctivitis [None]
  - Headache [None]
  - Ocular hyperaemia [None]
  - Eye inflammation [None]
  - Eye swelling [None]
  - Eye pain [None]
  - Vision blurred [None]
